FAERS Safety Report 8595991-1 (Version None)
Quarter: 2012Q3

REPORT INFORMATION
  Report Type: 
  Country: None (occurrence: None)
  Receive Date: 20120815
  Receipt Date: 20120112
  Transmission Date: 20120928
  Serious: Yes (Hospitalization)
  Sender: FDA-Public Use
  Company Number: US-ROCHE-1100829

PATIENT
  Sex: Male

DRUGS (3)
  1. ACTIVASE [Suspect]
     Indication: MYOCARDIAL INFARCTION
     Route: 040
  2. ACTIVASE [Suspect]
     Dosage: IN 50 MIN
  3. ACTIVASE [Suspect]
     Dosage: OVER 1 HOUR

REACTIONS (1)
  - CHEST PAIN [None]
